FAERS Safety Report 21873055 (Version 1)
Quarter: 2023Q1

REPORT INFORMATION
  Report Type: Spontaneous
  Country: GB (occurrence: None)
  Receive Date: 20230115
  Receipt Date: 20230115
  Transmission Date: 20230418
  Serious: No
  Sender: FDA-Public Use
  Company Number: None

PATIENT
  Age: 46 Year
  Sex: Female
  Weight: 72.1 kg

DRUGS (3)
  1. NO7 MENOPAUSE SKINCARE PROTECT AND HYDRATE DAY CREAM SUNSCREEN BROAD S [Suspect]
     Active Substance: AVOBENZONE\OCTINOXATE\OCTISALATE\OCTOCRYLENE
     Indication: Dry skin
     Dates: start: 20230114, end: 20230114
  2. Berroca [Concomitant]
  3. VITAMIN B12 [Concomitant]
     Active Substance: CYANOCOBALAMIN

REACTIONS (3)
  - Drug hypersensitivity [None]
  - Eye pain [None]
  - Impaired work ability [None]

NARRATIVE: CASE EVENT DATE: 20230114
